FAERS Safety Report 21922956 (Version 7)
Quarter: 2023Q4

REPORT INFORMATION
  Report Type: Report from Study
  Country: CO (occurrence: CO)
  Receive Date: 20230128
  Receipt Date: 20231129
  Transmission Date: 20240110
  Serious: Yes (Other)
  Sender: FDA-Public Use
  Company Number: CO-002147023-NVSC2023CO019259

PATIENT
  Sex: Female
  Weight: 72 kg

DRUGS (1)
  1. COSENTYX [Suspect]
     Active Substance: SECUKINUMAB
     Indication: Psoriasis
     Dosage: 300 MG, QMO
     Route: 058
     Dates: start: 20000103

REACTIONS (9)
  - Neoplasm malignant [Unknown]
  - Bone demineralisation [Unknown]
  - Spinal pain [Unknown]
  - Dysstasia [Unknown]
  - Pyrexia [Unknown]
  - Influenza [Unknown]
  - Gait disturbance [Unknown]
  - Rash macular [Unknown]
  - Psoriasis [Unknown]

NARRATIVE: CASE EVENT DATE: 20160101
